FAERS Safety Report 15320713 (Version 1)
Quarter: 2018Q3

REPORT INFORMATION
  Report Type: Spontaneous
  Country: AT (occurrence: AT)
  Receive Date: 20180827
  Receipt Date: 20180827
  Transmission Date: 20181010
  Serious: Yes (Other)
  Sender: FDA-Public Use
  Company Number: PHHY2018AT077933

PATIENT
  Age: 76 Year
  Sex: Female
  Weight: 57 kg

DRUGS (1)
  1. TAMSULOSIN [Suspect]
     Active Substance: TAMSULOSIN
     Indication: PRODUCT USED FOR UNKNOWN INDICATION
     Dosage: 0.4 MG, QD
     Route: 048
     Dates: start: 20180523, end: 20180604

REACTIONS (11)
  - Ageusia [Recovering/Resolving]
  - Blood pressure decreased [Unknown]
  - Off label use [Unknown]
  - Abdominal pain [Unknown]
  - Night sweats [Unknown]
  - Product use issue [Unknown]
  - Rash [Unknown]
  - Diplopia [Recovered/Resolved]
  - Hypophagia [Unknown]
  - Vomiting [Unknown]
  - Nausea [Unknown]

NARRATIVE: CASE EVENT DATE: 20180527
